FAERS Safety Report 26028353 (Version 2)
Quarter: 2025Q4

REPORT INFORMATION
  Report Type: Spontaneous
  Country: US (occurrence: US)
  Receive Date: 20251111
  Receipt Date: 20251217
  Transmission Date: 20260117
  Serious: No
  Sender: SHIONOGI
  Company Number: US-shionogi-202500011691

PATIENT
  Age: 28 Year
  Sex: Male

DRUGS (1)
  1. FETROJA [Suspect]
     Active Substance: CEFIDEROCOL SULFATE TOSYLATE
     Indication: Product used for unknown indication

REACTIONS (2)
  - Drug resistance [Unknown]
  - Drug ineffective [Unknown]
